FAERS Safety Report 10142320 (Version 2)
Quarter: 2014Q4

REPORT INFORMATION
  Report Type: Report from Study
  Country: NL (occurrence: NL)
  Receive Date: 20140429
  Receipt Date: 20141030
  Transmission Date: 20150528
  Serious: Yes (Hospitalization)
  Sender: FDA-Public Use
  Company Number: NL-ROCHE-1388968

PATIENT
  Age: 67 Year
  Sex: Female
  Weight: 87 kg

DRUGS (8)
  1. BEVACIZUMAB [Suspect]
     Active Substance: BEVACIZUMAB
     Indication: GASTRIC CANCER
     Dosage: LAST DOS EPRIOR TO SAE 21/MAR/2014
     Route: 042
     Dates: start: 20140321
  2. CAPECITABINE. [Suspect]
     Active Substance: CAPECITABINE
     Indication: GASTRIC CANCER
     Dosage: LAST DOSE PRIOR TO SAE 21/MAR/2014. DAY 1 - 14.
     Route: 048
     Dates: start: 20140321
  3. CLONAZEPAM. [Concomitant]
     Active Substance: CLONAZEPAM
     Route: 042
     Dates: start: 20140326, end: 20140412
  4. TRASTUZUMAB [Suspect]
     Active Substance: TRASTUZUMAB
     Indication: GASTRIC CANCER
     Dosage: LAST DOSE PRIOR TO SAE 21/MAR/2014
     Route: 042
     Dates: start: 20140321
  5. VALPROINSAURE [Concomitant]
     Dosage: 2 GK
     Route: 065
     Dates: start: 20140326, end: 20140416
  6. DOCETAXEL. [Suspect]
     Active Substance: DOCETAXEL
     Indication: GASTRIC CANCER
     Dosage: LAST DOSE PRIOR TO SAE 21/MAR/2014
     Route: 042
     Dates: start: 20140321
  7. KALIUM CHLORID [Concomitant]
     Route: 065
     Dates: start: 20140326, end: 20140328
  8. OXALIPLATIN. [Suspect]
     Active Substance: OXALIPLATIN
     Indication: GASTRIC CANCER
     Dosage: LAST DOS EPRIOR TO SAE  21/MAR/2014
     Route: 042
     Dates: start: 20140321

REACTIONS (1)
  - Toxic encephalopathy [Recovering/Resolving]

NARRATIVE: CASE EVENT DATE: 20140328
